FAERS Safety Report 21112171 (Version 1)
Quarter: 2022Q3

REPORT INFORMATION
  Report Type: Other
  Country: US (occurrence: None)
  Receive Date: 20220721
  Receipt Date: 20220721
  Transmission Date: 20221026
  Serious: Yes (Hospitalization)
  Sender: FDA-Public Use
  Company Number: US-ROCHE-3143726

PATIENT
  Age: 64 Year
  Sex: Male

DRUGS (1)
  1. TOCILIZUMAB [Suspect]
     Active Substance: TOCILIZUMAB
     Indication: COVID-19 pneumonia
     Route: 065

REACTIONS (4)
  - Bronchopulmonary aspergillosis [Recovering/Resolving]
  - Coccidioidomycosis [Recovering/Resolving]
  - Histoplasmosis [Recovering/Resolving]
  - Off label use [Unknown]
